FAERS Safety Report 21341555 (Version 1)
Quarter: 2022Q3

REPORT INFORMATION
  Report Type: Spontaneous
  Country: CA (occurrence: CA)
  Receive Date: 20220916
  Receipt Date: 20220916
  Transmission Date: 20221027
  Serious: Yes (Other)
  Sender: FDA-Public Use
  Company Number: CA-ALVOGEN-2022-ALVOGEN-120743

PATIENT
  Age: 78 Year
  Sex: Female
  Weight: 56.24 kg

DRUGS (5)
  1. DECADRON [Suspect]
     Active Substance: DEXAMETHASONE
     Indication: Premedication
     Route: 048
  2. SACITUZUMAB GOVITECAN [Suspect]
     Active Substance: SACITUZUMAB GOVITECAN
     Indication: Triple negative breast cancer
     Route: 042
     Dates: start: 20211216
  3. ONDANSETRON HYDROCHLORIDE [Concomitant]
     Active Substance: ONDANSETRON HYDROCHLORIDE
     Indication: Product used for unknown indication
  4. VITAMINS NOS/VITAMINS NOS [Concomitant]
     Indication: Product used for unknown indication
  5. DEXAMETHASONE SODIUM SUCCINATE/DEXAMETHASONE SODIUM SUCCINATE [Concomitant]
     Indication: Product used for unknown indication

REACTIONS (44)
  - Weight decreased [Not Recovered/Not Resolved]
  - Dizziness [Recovered/Resolved]
  - Diarrhoea [Recovered/Resolved]
  - Dehydration [Recovered/Resolved]
  - Hypotension [Not Recovered/Not Resolved]
  - Blood glucose abnormal [Unknown]
  - Malaise [Unknown]
  - Hypophagia [Recovering/Resolving]
  - Mobility decreased [Unknown]
  - Temperature regulation disorder [Unknown]
  - Device malfunction [Unknown]
  - Arthralgia [Unknown]
  - Scar [Unknown]
  - Dyspnoea [Not Recovered/Not Resolved]
  - Pain of skin [Unknown]
  - Alopecia [Unknown]
  - Drug hypersensitivity [Unknown]
  - Illness [Unknown]
  - Fatigue [Not Recovered/Not Resolved]
  - Fluid intake reduced [Recovering/Resolving]
  - Sopor [Unknown]
  - Asthenia [Not Recovered/Not Resolved]
  - Ill-defined disorder [Not Recovered/Not Resolved]
  - Constipation [Not Recovered/Not Resolved]
  - Weight increased [Unknown]
  - Hypertension [Unknown]
  - Insomnia [Unknown]
  - Unevaluable event [Not Recovered/Not Resolved]
  - Pain [Not Recovered/Not Resolved]
  - Chest pain [Unknown]
  - Hair growth abnormal [Unknown]
  - Muscle disorder [Not Recovered/Not Resolved]
  - Spinal pain [Unknown]
  - Discomfort [Not Recovered/Not Resolved]
  - Heart rate increased [Unknown]
  - Hypoaesthesia [Not Recovered/Not Resolved]
  - Paraesthesia [Unknown]
  - Back pain [Recovered/Resolved]
  - Pleural effusion [Unknown]
  - Triple negative breast cancer [Unknown]
  - Disease progression [Unknown]
  - Investigation abnormal [Not Recovered/Not Resolved]
  - Inappropriate schedule of product administration [Recovered/Resolved]
  - Weight fluctuation [Unknown]

NARRATIVE: CASE EVENT DATE: 20211216
